FAERS Safety Report 6361438-9 (Version None)
Quarter: 2009Q3

REPORT INFORMATION
  Report Type: 
  Country: None (occurrence: None)
  Receive Date: 20090916
  Receipt Date: 20090916
  Transmission Date: 20100115
  Serious: Yes (Life-Threatening)
  Sender: FDA-Public Use
  Company Number: None

PATIENT
  Sex: Male
  Weight: 33.5662 kg

DRUGS (1)
  1. CIMETIDINE [Suspect]
     Indication: SKIN PAPILLOMA
     Dosage: 400MG TWICE DAILY ORAL
     Route: 048
     Dates: start: 20090715, end: 20090822

REACTIONS (6)
  - ABNORMAL BEHAVIOUR [None]
  - AGITATION [None]
  - DEPRESSION [None]
  - PRURITUS [None]
  - SUICIDAL IDEATION [None]
  - URTICARIA [None]
